FAERS Safety Report 19688642 (Version 2)
Quarter: 2021Q3

REPORT INFORMATION
  Report Type: Spontaneous
  Country: CA (occurrence: CA)
  Receive Date: 20210812
  Receipt Date: 20210928
  Transmission Date: 20211014
  Serious: Yes (Other)
  Sender: FDA-Public Use
  Company Number: CA-CELLTRION INC.-2021CA010037

PATIENT

DRUGS (11)
  1. CELEBREX [Concomitant]
     Active Substance: CELECOXIB
     Indication: ARTHRITIS
     Dosage: 1 DF, 1X/DAY DOSAGE INFORMATION NOT AVAILABLE; DISCONTINUED
     Route: 048
  2. ESTROGEL [Concomitant]
     Active Substance: ESTRADIOL
     Dosage: UNK
  3. FOLIC ACID. [Concomitant]
     Active Substance: FOLIC ACID
     Dosage: UNK
  4. INFLECTRA [Suspect]
     Active Substance: INFLIXIMAB-DYYB
     Dosage: 295 MG EVERY 6 WEEK
     Route: 042
     Dates: start: 20210719
  5. CYPROTERONE [Concomitant]
     Active Substance: CYPROTERONE
     Dosage: UNK
  6. INFLECTRA [Suspect]
     Active Substance: INFLIXIMAB-DYYB
     Indication: ANKYLOSING SPONDYLITIS
     Dosage: 285 MG, 0, 2, THEN EVERY 8 WEEKS
     Route: 042
     Dates: start: 20200116, end: 20210311
  7. INFLECTRA [Suspect]
     Active Substance: INFLIXIMAB-DYYB
     Dosage: 295 MG, 0, 2, THEN EVERY 8 WEEKS
     Route: 042
     Dates: start: 20210422
  8. INFLECTRA [Suspect]
     Active Substance: INFLIXIMAB-DYYB
     Dosage: 295 MG EVERY 6 WEEK
     Route: 042
     Dates: start: 20210604
  9. SEROQUEL [Concomitant]
     Active Substance: QUETIAPINE FUMARATE
     Dosage: UNK
  10. METHOTREXATE. [Concomitant]
     Active Substance: METHOTREXATE
     Dosage: 10 MG, WEEKLY (MONDAYS)
     Route: 048
     Dates: start: 2011
  11. ESCITALOPRAM [Concomitant]
     Active Substance: ESCITALOPRAM OXALATE
     Dosage: UNK

REACTIONS (6)
  - Mental disorder [Not Recovered/Not Resolved]
  - Ear pain [Unknown]
  - Bacterial infection [Unknown]
  - Ear infection [Unknown]
  - Malaise [Not Recovered/Not Resolved]
  - Loss of personal independence in daily activities [Unknown]

NARRATIVE: CASE EVENT DATE: 2021
